FAERS Safety Report 24589007 (Version 1)
Quarter: 2024Q4

REPORT INFORMATION
  Report Type: Spontaneous
  Country: US (occurrence: US)
  Receive Date: 20241107
  Receipt Date: 20241107
  Transmission Date: 20250115
  Serious: No
  Sender: UNITED EXCHANGE
  Company Number: US-United Exchange Corporation-2164654

PATIENT
  Sex: Male

DRUGS (3)
  1. FAMILY CARE ADVANCED FORMULA EYE [Suspect]
     Active Substance: DEXTRAN 70\POLYETHYLENE GLYCOL 400\POVIDONE\TETRAHYDROZOLINE HYDROCHLORIDE
     Indication: Erythema
     Dates: start: 20240213, end: 20240213
  2. FAMILY CARE ADVANCED FORMULA EYE [Suspect]
     Active Substance: DEXTRAN 70\POLYETHYLENE GLYCOL 400\POVIDONE\TETRAHYDROZOLINE HYDROCHLORIDE
     Indication: Dry eye
  3. FAMILY CARE ADVANCED FORMULA EYE [Suspect]
     Active Substance: DEXTRAN 70\POLYETHYLENE GLYCOL 400\POVIDONE\TETRAHYDROZOLINE HYDROCHLORIDE
     Indication: Eye irritation

REACTIONS (1)
  - Mydriasis [Unknown]

NARRATIVE: CASE EVENT DATE: 20240213
